FAERS Safety Report 21182267 (Version 2)
Quarter: 2022Q3

REPORT INFORMATION
  Report Type: Other
  Country: US (occurrence: None)
  Receive Date: 20220807
  Receipt Date: 20220816
  Transmission Date: 20221027
  Serious: Yes (Death)
  Sender: FDA-Public Use
  Company Number: US-ROCHE-3154518

PATIENT
  Sex: Male
  Weight: 60.6 kg

DRUGS (19)
  1. ALECENSA [Suspect]
     Active Substance: ALECTINIB HYDROCHLORIDE
     Indication: Lung neoplasm malignant
     Dosage: TAKE 2 CAPSULE(S) BY MOUTH 3 TIMES A DAY
     Route: 048
  2. ALECENSA [Suspect]
     Active Substance: ALECTINIB HYDROCHLORIDE
     Indication: Metastases to lung
  3. ACETAMINOPHEN [Concomitant]
     Active Substance: ACETAMINOPHEN
  4. ALBUTEROL [Concomitant]
     Active Substance: ALBUTEROL
  5. CHONDROITIN SULFATE (BOVINE)\GLUCOSAMINE HYDROCHLORIDE [Concomitant]
     Active Substance: CHONDROITIN SULFATE (BOVINE)\GLUCOSAMINE HYDROCHLORIDE
  6. ASPIRIN [Concomitant]
     Active Substance: ASPIRIN
  7. FLUTICASONE [Concomitant]
     Active Substance: FLUTICASONE
  8. DICLOFENAC [Concomitant]
     Active Substance: DICLOFENAC
  9. LEVOTHYROXINE [Concomitant]
     Active Substance: LEVOTHYROXINE
  10. LORATADINE [Concomitant]
     Active Substance: LORATADINE
  11. LORLATINIB [Concomitant]
     Active Substance: LORLATINIB
  12. MAGNESIUM HYDROXIDE [Concomitant]
     Active Substance: MAGNESIUM HYDROXIDE
  13. MAGNESIUM OXIDE [Concomitant]
     Active Substance: MAGNESIUM OXIDE
  14. MELATONIN [Concomitant]
     Active Substance: MELATONIN
  15. MONTELUKAST [Concomitant]
     Active Substance: MONTELUKAST SODIUM
  16. FLORASTOR [SACCHAROMYCES BOULARDII] [Concomitant]
  17. ONDANSETRON [Concomitant]
     Active Substance: ONDANSETRON
  18. TIOTROPIUM BROMIDE [Concomitant]
     Active Substance: TIOTROPIUM BROMIDE
  19. TRAZODONE [Concomitant]
     Active Substance: TRAZODONE HYDROCHLORIDE

REACTIONS (1)
  - Death [Fatal]
